FAERS Safety Report 9738574 (Version 3)
Quarter: 2014Q1

REPORT INFORMATION
  Report Type: Spontaneous
  Country: JP (occurrence: JP)
  Receive Date: 20131209
  Receipt Date: 20140115
  Transmission Date: 20141002
  Serious: Yes (Life-Threatening, Hospitalization, Other)
  Sender: FDA-Public Use
  Company Number: JP-ROCHE-1289238

PATIENT
  Age: 68 Year
  Sex: Female
  Weight: 52 kg

DRUGS (18)
  1. XELODA [Suspect]
     Indication: COLON CANCER RECURRENT
     Route: 048
     Dates: start: 20130829, end: 20130911
  2. XELODA [Interacting]
     Route: 048
     Dates: start: 20130920, end: 20131003
  3. WARFARIN [Interacting]
     Indication: PULMONARY EMBOLISM
     Route: 048
     Dates: start: 20130116, end: 20131007
  4. ELPLAT [Concomitant]
     Indication: COLON CANCER
     Route: 041
     Dates: start: 20130829
  5. ELPLAT [Concomitant]
     Route: 041
     Dates: start: 20130920
  6. DEXART [Concomitant]
     Route: 065
     Dates: start: 20130829
  7. SEROTONE [Concomitant]
     Route: 065
     Dates: start: 20130829
  8. RESTAMIN [Concomitant]
     Route: 065
     Dates: start: 20130829
  9. ARTIST [Concomitant]
     Route: 048
  10. BAYASPIRIN [Concomitant]
     Route: 048
  11. BLOPRESS [Concomitant]
     Route: 048
  12. AMLODIPINE [Concomitant]
     Route: 048
  13. OMEPRAL [Concomitant]
     Route: 048
  14. TRICHLORMETHIAZIDE [Concomitant]
     Route: 048
  15. BIOFERMIN T [Concomitant]
     Route: 048
  16. AMOBAN [Concomitant]
     Route: 048
  17. DEPAS [Concomitant]
     Route: 048
  18. GASMOTIN [Concomitant]
     Route: 048
     Dates: start: 20130829

REACTIONS (5)
  - Haemorrhage subcutaneous [Recovered/Resolved]
  - Hypophagia [Unknown]
  - Stomatitis [Unknown]
  - Abdominal discomfort [Unknown]
  - Drug interaction [Unknown]
